FAERS Safety Report 5887171-5 (Version None)
Quarter: 2008Q3

REPORT INFORMATION
  Report Type: 
  Country: None (occurrence: None)
  Receive Date: 20080917
  Receipt Date: 20080905
  Transmission Date: 20090109
  Serious: Yes (Hospitalization, Other)
  Sender: FDA-Public Use
  Company Number: US-PFIZER INC-2008077403

PATIENT
  Age: 22 Year
  Sex: Male

DRUGS (27)
  1. NELFINAVIR MESILATE [Suspect]
     Indication: HIV INFECTION
     Dates: start: 19970619, end: 19990623
  2. INVIRASE [Suspect]
     Indication: HIV INFECTION
     Dates: start: 19960418, end: 19961024
  3. ENFUVIRTIDE [Suspect]
     Indication: HIV INFECTION
     Dates: start: 20011105, end: 20050925
  4. ZIDOVUDINE [Suspect]
     Indication: HIV INFECTION
     Dates: start: 19941110, end: 20050906
  5. LAMIVUDINE [Suspect]
     Indication: HIV INFECTION
     Dates: start: 19960926
  6. STAVUDINE [Suspect]
     Indication: HIV INFECTION
     Dates: start: 19961024, end: 20011105
  7. RITONAVIR [Suspect]
     Indication: HIV INFECTION
     Dates: start: 19961024, end: 19970619
  8. LOPINAVIR [Suspect]
     Indication: HIV INFECTION
     Dates: start: 20000703, end: 20030331
  9. INDINIVIR SULFATE [Suspect]
     Indication: HIV INFECTION
     Dates: start: 19970619, end: 19971117
  10. NEVIRAPINE [Suspect]
     Indication: HIV INFECTION
     Dates: start: 19971117, end: 19971201
  11. DIDANOSINE [Suspect]
     Indication: HIV INFECTION
     Dates: start: 19990824, end: 20030331
  12. DELAVIRDINE [Suspect]
     Indication: HIV INFECTION
     Dates: start: 19990824, end: 20000621
  13. HYDROXYUREA [Suspect]
     Indication: HIV INFECTION
     Dates: start: 19990824, end: 20000518
  14. AMPRENAVIR [Suspect]
     Indication: HIV INFECTION
     Dates: start: 20000703, end: 20060620
  15. EFAVIRENZ [Suspect]
     Indication: HIV INFECTION
     Dates: start: 20011105, end: 20041006
  16. TENOFOVIR [Suspect]
     Indication: HIV INFECTION
     Dates: start: 20020531
  17. ATAZANAVIR [Suspect]
     Indication: HIV INFECTION
     Dates: start: 20041006, end: 20050906
  18. DARUNAVIR [Suspect]
     Indication: HIV INFECTION
     Dates: start: 20060620, end: 20070909
  19. FOSAMPRENAVIR [Suspect]
     Indication: HIV INFECTION
     Dates: start: 20071009
  20. SULPHAMETHOXAZOLE [Concomitant]
  21. GEMFIBROZIL [Concomitant]
  22. PANCRELIPASE [Concomitant]
  23. RANITIDINE [Concomitant]
  24. CALCIUM CARBONATE [Concomitant]
  25. VITAMIN D [Concomitant]
  26. AZITHROMYCIN [Concomitant]
  27. POSACONAZOLE [Concomitant]

REACTIONS (6)
  - CACHEXIA [None]
  - CEREBROVASCULAR DISORDER [None]
  - DEPRESSION [None]
  - HEADACHE [None]
  - PANCREATITIS CHRONIC [None]
  - PNEUMOCYSTIS JIROVECI PNEUMONIA [None]
